FAERS Safety Report 24669519 (Version 1)
Quarter: 2024Q4

REPORT INFORMATION
  Report Type: Spontaneous
  Country: JP (occurrence: JP)
  Receive Date: 20241127
  Receipt Date: 20241127
  Transmission Date: 20250115
  Serious: Yes (Other)
  Sender: NOVARTIS
  Company Number: JP-002147023-NVSJ2024JP013737

PATIENT
  Age: 71 Year
  Sex: Female

DRUGS (8)
  1. CYCLOSPORINE [Interacting]
     Active Substance: CYCLOSPORINE
     Indication: Immunosuppressant drug therapy
     Dosage: UNK
     Route: 048
  2. PACLITAXEL [Interacting]
     Active Substance: PACLITAXEL
     Indication: Malignant peritoneal neoplasm
     Dosage: UNK (80% DOSE)
     Route: 065
  3. PACLITAXEL [Interacting]
     Active Substance: PACLITAXEL
     Dosage: UNK (60% DOSE)
     Route: 065
  4. DEXAMETHASONE [Interacting]
     Active Substance: DEXAMETHASONE
     Indication: Antiemetic supportive care
     Dosage: UNK
     Route: 065
  5. NIRAPARIB [Interacting]
     Active Substance: NIRAPARIB
     Indication: Malignant peritoneal neoplasm
     Dosage: 200 MG
     Route: 065
  6. NIRAPARIB [Interacting]
     Active Substance: NIRAPARIB
     Dosage: 100 MG (ONCE EVERY 3 DAYS)
     Route: 065
  7. CARBOPLATIN [Concomitant]
     Active Substance: CARBOPLATIN
     Indication: Malignant peritoneal neoplasm
     Dosage: UNK (AUC6)
     Route: 065
  8. CARBOPLATIN [Concomitant]
     Active Substance: CARBOPLATIN
     Dosage: UNK (AUC4)
     Route: 065

REACTIONS (4)
  - Neutrophil count decreased [Unknown]
  - Febrile neutropenia [Unknown]
  - Platelet count decreased [Unknown]
  - Drug interaction [Unknown]
